FAERS Safety Report 24405473 (Version 1)
Quarter: 2024Q4

REPORT INFORMATION
  Report Type: Spontaneous
  Country: GB (occurrence: GB)
  Receive Date: 20241007
  Receipt Date: 20241007
  Transmission Date: 20250114
  Serious: Yes (Death, Other)
  Sender: SANOFI AVENTIS
  Company Number: GB-SA-2024SA286494

PATIENT
  Age: 46 Year
  Sex: Male

DRUGS (1)
  1. REZUROCK [Suspect]
     Active Substance: BELUMOSUDIL
     Dosage: UNK

REACTIONS (4)
  - Death [Fatal]
  - Tongue neoplasm malignant stage unspecified [Unknown]
  - Graft versus host disease oral [Unknown]
  - Headache [Unknown]
